FAERS Safety Report 14550929 (Version 1)
Quarter: 2018Q1

REPORT INFORMATION
  Report Type: Spontaneous
  Country: US (occurrence: US)
  Receive Date: 20180220
  Receipt Date: 20180220
  Transmission Date: 20180509
  Serious: No
  Sender: FDA-Public Use
  Company Number: US-TEVA-747584USA

PATIENT
  Sex: Male

DRUGS (2)
  1. ADERALL [Concomitant]
  2. AMPHETAMINE W/DEXTROAMPHETAMINE [Suspect]
     Active Substance: AMPHETAMINE SULFATE\DEXTROAMPHETAMINE
     Route: 048
     Dates: start: 20160701

REACTIONS (2)
  - Throat irritation [Unknown]
  - Foreign body in respiratory tract [Unknown]
